FAERS Safety Report 14632730 (Version 4)
Quarter: 2020Q4

REPORT INFORMATION
  Report Type: Spontaneous
  Country: US (occurrence: US)
  Receive Date: 20180313
  Receipt Date: 20201223
  Transmission Date: 20210113
  Serious: Yes (Other)
  Sender: FDA-Public Use
  Company Number: US-MYLANLABS-2018M1015985

PATIENT
  Age: 15 Month
  Sex: Male

DRUGS (1)
  1. EPINEPHRINE. [Suspect]
     Active Substance: EPINEPHRINE
     Indication: PRODUCT USED FOR UNKNOWN INDICATION
     Dosage: 0.15 MILLIGRAM

REACTIONS (14)
  - Injury corneal [Unknown]
  - Mydriasis [Unknown]
  - Pupillary light reflex tests abnormal [Unknown]
  - Iris injury [Unknown]
  - Intraocular pressure decreased [Unknown]
  - Retinal tear [Unknown]
  - Macular scar [Unknown]
  - Intra-ocular injection [Unknown]
  - Retinal haemorrhage [Unknown]
  - Visual acuity reduced [Unknown]
  - Macular fibrosis [Unknown]
  - Retinal detachment [Unknown]
  - Accidental exposure to product [Unknown]
  - Injection site haemorrhage [Unknown]
